FAERS Safety Report 8087027-6 (Version None)
Quarter: 2012Q1

REPORT INFORMATION
  Report Type: 
  Country: None (occurrence: None)
  Receive Date: 20120128
  Receipt Date: 20110520
  Transmission Date: 20120608
  Serious: Yes (Hospitalization)
  Sender: FDA-Public Use
  Company Number: US-ABBOTT-11P-163-0727665-00

PATIENT
  Sex: Female

DRUGS (9)
  1. METFFORMIN HYDROCHLORIDE [Concomitant]
     Indication: TYPE 2 DIABETES MELLITUS
  2. GLUCOPHAGE [Concomitant]
     Indication: TYPE 2 DIABETES MELLITUS
  3. FLUOXETINE [Concomitant]
     Indication: DEPRESSION
  4. HYDROCHLOROTHIAZIDE [Concomitant]
     Indication: DIURETIC THERAPY
  5. AMLODIPINE [Concomitant]
     Indication: HYPERTENSION
  6. HUMIRA [Suspect]
     Indication: PSORIASIS
     Dates: start: 20110506, end: 20110513
  7. PRILOSEC [Concomitant]
     Indication: DYSPEPSIA
  8. LIALDA [Concomitant]
     Indication: COLITIS ULCERATIVE
  9. LANTUS [Concomitant]
     Indication: TYPE 2 DIABETES MELLITUS

REACTIONS (4)
  - CELLULITIS [None]
  - JOINT SWELLING [None]
  - OEDEMA PERIPHERAL [None]
  - PAIN [None]
